FAERS Safety Report 16707199 (Version 1)
Quarter: 2019Q3

REPORT INFORMATION
  Report Type: Spontaneous
  Country: US (occurrence: US)
  Receive Date: 20190629
  Receipt Date: 20190629
  Transmission Date: 20191004
  Serious: No
  Sender: FDA-Public Use
  Company Number: None

PATIENT
  Age: 75 Year
  Sex: Female

DRUGS (1)
  1. PROMACTA [Suspect]
     Active Substance: ELTROMBOPAG OLAMINE
     Dosage: ?          OTHER DOSE:2 TABLETS;?
     Route: 048
     Dates: start: 20190604

REACTIONS (2)
  - Drug ineffective [None]
  - Platelet count decreased [None]

NARRATIVE: CASE EVENT DATE: 20190629
